FAERS Safety Report 15899276 (Version 1)
Quarter: 2019Q1

REPORT INFORMATION
  Report Type: Spontaneous
  Country: ES (occurrence: ES)
  Receive Date: 20190201
  Receipt Date: 20190201
  Transmission Date: 20190417
  Serious: Yes (Other)
  Sender: FDA-Public Use
  Company Number: ES-DENTSPLY-2019SCDP000051

PATIENT
  Age: 40 Year
  Sex: Female

DRUGS (1)
  1. MEPIVACAINE HCL [Suspect]
     Active Substance: MEPIVACAINE\MEPIVACAINE HYDROCHLORIDE
     Indication: LOCAL ANAESTHESIA
     Dosage: 2 %, UNK
     Route: 013

REACTIONS (3)
  - Maternal exposure during pregnancy [Recovered/Resolved]
  - Embolia cutis medicamentosa [None]
  - Product use issue [Recovered/Resolved]
